FAERS Safety Report 6129589-1 (Version None)
Quarter: 2009Q1

REPORT INFORMATION
  Report Type: 
  Country: None (occurrence: None)
  Receive Date: 20090324
  Receipt Date: 20090310
  Transmission Date: 20090719
  Serious: Yes (Hospitalization)
  Sender: FDA-Public Use
  Company Number: NL-PFIZER INC-2005081939

PATIENT

DRUGS (6)
  1. LYRICA [Suspect]
     Indication: POST HERPETIC NEURALGIA
     Route: 048
     Dates: start: 20050501, end: 20050529
  2. LYRICA [Suspect]
     Indication: NEUROPATHY PERIPHERAL
  3. TRAMADOL HCL [Concomitant]
     Route: 048
  4. LASIX [Concomitant]
     Route: 065
  5. EUTHYROX [Concomitant]
     Route: 048
  6. MAGNESIUM SULFATE [Concomitant]
     Route: 065

REACTIONS (21)
  - BRADYCARDIA [None]
  - CARDIAC ARREST [None]
  - CHEST PAIN [None]
  - CIRCULATORY COLLAPSE [None]
  - DEMENTIA [None]
  - DIZZINESS [None]
  - DRUG TOXICITY [None]
  - DYSPNOEA [None]
  - ENDOTRACHEAL INTUBATION [None]
  - GAIT DISTURBANCE [None]
  - HAEMATOCRIT DECREASED [None]
  - HAEMOGLOBIN DECREASED [None]
  - HYPOTENSION [None]
  - NAUSEA [None]
  - RED BLOOD CELL COUNT DECREASED [None]
  - RESPIRATORY ARREST [None]
  - RESPIRATORY DEPRESSION [None]
  - SPEECH DISORDER [None]
  - TACHYCARDIA [None]
  - THINKING ABNORMAL [None]
  - VOMITING [None]
